FAERS Safety Report 7924441-0 (Version None)
Quarter: 2011Q4

REPORT INFORMATION
  Report Type: 
  Country: None (occurrence: None)
  Receive Date: 20111117
  Receipt Date: 20110322
  Transmission Date: 20120403
  Serious: No
  Sender: FDA-Public Use
  Company Number: US-AMGEN-USASP2011015623

PATIENT
  Sex: Female
  Weight: 95.238 kg

DRUGS (7)
  1. ENBREL [Suspect]
     Indication: PRODUCT USED FOR UNKNOWN INDICATION
     Dosage: 50 MG, QWK
  2. CLARITIN                           /00413701/ [Concomitant]
     Dosage: 10 MG, UNK
  3. ZYRTEC [Concomitant]
     Dosage: 10 MG, UNK
  4. ASMANEX TWISTHALER [Concomitant]
     Dosage: 220 MUG, UNK
  5. ALBUTEROL [Concomitant]
     Dosage: 90 MUG, UNK
  6. CELEXA [Concomitant]
     Dosage: 10 MG, UNK
  7. VITAMIN D [Concomitant]

REACTIONS (2)
  - GASTROENTERITIS VIRAL [None]
  - UPPER RESPIRATORY TRACT INFECTION [None]
